FAERS Safety Report 8240143-8 (Version None)
Quarter: 2012Q1

REPORT INFORMATION
  Report Type: 
  Country: None (occurrence: None)
  Receive Date: 20120327
  Receipt Date: 20120327
  Transmission Date: 20120608
  Serious: Yes (Other)
  Sender: FDA-Public Use
  Company Number: None

PATIENT
  Age: 63 Year
  Sex: Male
  Weight: 74.8435 kg

DRUGS (1)
  1. ETODOLAC [Suspect]
     Indication: ARTHRITIS
     Dosage: 400 MG 2 TIMES/DAY
     Dates: start: 20120215, end: 20120222

REACTIONS (2)
  - DRUG INEFFECTIVE [None]
  - PRODUCT SUBSTITUTION ISSUE [None]
